FAERS Safety Report 5070981-4 (Version None)
Quarter: 2006Q3

REPORT INFORMATION
  Report Type: 
  Country: None (occurrence: None)
  Receive Date: 20060714
  Receipt Date: 20060424
  Transmission Date: 20061208
  Serious: No
  Sender: FDA-Public Use
  Company Number: 2006SP001829

PATIENT
  Age: 40 Year
  Sex: Female
  Weight: 90.7194 kg

DRUGS (2)
  1. LUNESTA [Suspect]
     Indication: INSOMNIA
     Dosage: 3 MG ; HS; ORAL
     Route: 048
     Dates: start: 20060420, end: 20060421
  2. LEVOXYL [Concomitant]

REACTIONS (3)
  - DYSGEUSIA [None]
  - EUPHORIC MOOD [None]
  - INITIAL INSOMNIA [None]
